FAERS Safety Report 4721464-X (Version None)
Quarter: 2005Q3

REPORT INFORMATION
  Report Type: 
  Country: None (occurrence: None)
  Receive Date: 20050721
  Receipt Date: 20040923
  Transmission Date: 20060218
  Serious: No
  Sender: FDA-Public Use
  Company Number: US-BRISTOL-MYERS SQUIBB COMPANY-12711222

PATIENT
  Age: 90 Year
  Sex: Female
  Weight: 63 kg

DRUGS (6)
  1. COUMADIN [Suspect]
     Indication: ATRIAL FLUTTER
     Dosage: DOSE SCHEDULE:  5 DAYS ON AND 2 DAYS OFF
     Route: 048
     Dates: start: 20040101
  2. LASIX [Suspect]
  3. DIURETIC [Concomitant]
  4. ATIVAN [Concomitant]
  5. PREVACID [Concomitant]
  6. TYLENOL [Concomitant]

REACTIONS (1)
  - PRURITUS GENERALISED [None]
